FAERS Safety Report 8163648-7 (Version None)
Quarter: 2012Q1

REPORT INFORMATION
  Report Type: 
  Country: None (occurrence: None)
  Receive Date: 20120103
  Receipt Date: 20111119
  Transmission Date: 20120608
  Serious: No
  Sender: FDA-Public Use
  Company Number: AE-2011-003807

PATIENT
  Age: 49 Year
  Sex: Female
  Weight: 87.5442 kg

DRUGS (5)
  1. RIBAVIRIN [Concomitant]
  2. XANAX [Concomitant]
  3. CIPRO [Concomitant]
  4. INCIVEK [Suspect]
     Dosage: 2250 MG (750 MG,3 IN 1 D),ORAL
     Route: 048
     Dates: start: 20110819
  5. PEGINTERFERON (PEGINTERFERON ALFA-2A) [Concomitant]

REACTIONS (6)
  - DRUG DOSE OMISSION [None]
  - ASTHENIA [None]
  - ABDOMINAL DISTENSION [None]
  - PAIN [None]
  - ANXIETY [None]
  - DECREASED APPETITE [None]
